FAERS Safety Report 10064878 (Version 1)
Quarter: 2014Q1

REPORT INFORMATION
  Report Type: Spontaneous
  Country: US (occurrence: None)
  Receive Date: 20140328
  Receipt Date: 20140328
  Transmission Date: 20141002
  Serious: No
  Sender: FDA-Public Use
  Company Number: 1000052590

PATIENT
  Age: 85 Year
  Sex: Female

DRUGS (7)
  1. LINZESS (LINACLOTIDE) (290 MICROGRAM, CAPSULES) [Suspect]
     Indication: IRRITABLE BOWEL SYNDROME
     Route: 048
     Dates: start: 201312
  2. DIOVAN (VALSARTAN) (VALSARTAN) [Concomitant]
  3. LIPITOR (ATORVASTAIN CALCIUM) (ATORVASTATIN CALCIUM) [Concomitant]
  4. SYNTHROID (LEVOTHYROXINE SODIUM) (LEVOTHYROXINE SODIUM) [Concomitant]
  5. AMBIEN (ZOLPIDEM TARTRATE) (ZOLPIDEM TARTRATE) [Concomitant]
  6. CYMBALTA [Concomitant]
  7. CLONAZEPAM (CLONAZEPAM) (CLONAZEPAM) [Concomitant]

REACTIONS (1)
  - Diarrhoea [None]
